FAERS Safety Report 10236892 (Version 2)
Quarter: 2014Q2

REPORT INFORMATION
  Report Type: Spontaneous
  Country: IT (occurrence: IT)
  Receive Date: 20140613
  Receipt Date: 20140619
  Transmission Date: 20141212
  Serious: Yes (Hospitalization)
  Sender: FDA-Public Use
  Company Number: IT-PFIZER INC-2014161012

PATIENT
  Age: 80 Year
  Sex: Female

DRUGS (24)
  1. TAZOCIN [Suspect]
     Indication: PNEUMONIA BACTERIAL
     Dosage: 9 G, DAILY
     Route: 030
     Dates: start: 20140408, end: 20140428
  2. CLEXANE [Suspect]
     Indication: THROMBOSIS PROPHYLAXIS
     Dosage: 4000 IU, DAILY
     Route: 058
     Dates: start: 20140417, end: 20140418
  3. CALCIPARINA [Suspect]
     Indication: DEEP VEIN THROMBOSIS
     Dosage: 0.6 ML, DAILY
     Route: 058
     Dates: start: 20140513, end: 20140605
  4. INVANZ [Suspect]
     Indication: PNEUMONIA BACTERIAL
     Dosage: 1 G, DAILY
     Route: 042
  5. VANCOMICINA HIKMA [Suspect]
     Indication: PNEUMONIA BACTERIAL
     Dosage: 2 G, DAILY
     Route: 042
  6. CETIRIZINA TEVA [Suspect]
     Dosage: 10 MG, DAILY
     Route: 048
  7. CONTRAMAL [Suspect]
     Dosage: 20 DROPS , DAILY
     Route: 048
     Dates: start: 20140409, end: 20140527
  8. LEVOFLOXACINA KABI [Suspect]
     Indication: PNEUMONIA BACTERIAL
     Dosage: 1 DF, DAILY
     Route: 042
     Dates: start: 20140409, end: 20140429
  9. TIKLID [Suspect]
     Dosage: 2 DF, DAILY
     Route: 048
     Dates: start: 20140409, end: 20140429
  10. ACICLIN [Suspect]
     Indication: GENITAL HERPES
     Dosage: 1200 MG, DAILY
     Route: 048
  11. ACETYLCYSTEINE [Suspect]
     Dosage: 600 MG, THRICE
     Dates: start: 20140514, end: 20140515
  12. MOVICOL [Suspect]
     Dosage: 2 DF, AS NEEDED
     Dates: start: 20140513, end: 20140519
  13. KANRENOL [Suspect]
     Dosage: 1 DF, DAILY
     Dates: start: 20140512, end: 20140525
  14. CLENIL [Suspect]
     Dosage: UNK
     Route: 055
     Dates: start: 20140412, end: 20140516
  15. ATEM [Suspect]
     Dosage: UNK
     Route: 055
     Dates: start: 20140412, end: 20140516
  16. BRONCOVALEAS [Suspect]
     Dosage: 7 DROPS, UNK
     Route: 055
     Dates: start: 20140412, end: 20140516
  17. IOMERON 350 [Suspect]
     Indication: ARTERIOGRAM
     Dosage: 30 ML, UNK
     Route: 042
     Dates: start: 20140514
  18. OMEPRAZOLE [Concomitant]
     Dosage: 40 MG, UNK
     Route: 048
  19. XAGRID [Concomitant]
     Indication: MYELOPROLIFERATIVE DISORDER
     Dosage: 0.5 MG, UNK
     Route: 048
  20. SEREVENT [Concomitant]
     Indication: ASTHMA
     Dosage: 4 DF, UNK
     Route: 055
  21. AIRCORT [Concomitant]
     Route: 055
  22. FOLINA [Concomitant]
     Route: 048
  23. TAVOR [Concomitant]
     Indication: INSOMNIA
     Dosage: 2.5 MG, UNK
  24. LASIX FOR INJECTION [Concomitant]
     Dosage: 1 DF, UNK
     Route: 030

REACTIONS (4)
  - Generalised oedema [Recovering/Resolving]
  - Skin exfoliation [Recovering/Resolving]
  - Haematidrosis [Recovering/Resolving]
  - Drug reaction with eosinophilia and systemic symptoms [Recovering/Resolving]
